FAERS Safety Report 24323363 (Version 2)
Quarter: 2024Q3

REPORT INFORMATION
  Report Type: Spontaneous
  Country: FR (occurrence: FR)
  Receive Date: 20240916
  Receipt Date: 20240927
  Transmission Date: 20241016
  Serious: Yes (Other)
  Sender: MYLAN
  Company Number: NL-Daleco-2024-FR-000011

PATIENT
  Age: 74 Year
  Sex: Male

DRUGS (9)
  1. RAMIPRIL [Suspect]
     Active Substance: RAMIPRIL
     Indication: Product used for unknown indication
     Dosage: 2.5 MILLIGRAM, QD (1 TABLET IN THE MORNING)
     Route: 065
  2. CLOPIDOGREL [Suspect]
     Active Substance: CLOPIDOGREL BISULFATE
     Indication: Product used for unknown indication
     Dosage: 1 DOSAGE FORM, QD (1X IN THE MORNING UNTIL SEPTEMBER 2024)
     Route: 065
  3. PANTOPRAZOLE [Suspect]
     Active Substance: PANTOPRAZOLE
     Indication: Product used for unknown indication
     Dosage: 1 DOSAGE FORM, QD (1X IN THE EVENING)
     Route: 065
  4. BISOPROLOL [Suspect]
     Active Substance: BISOPROLOL\BISOPROLOL FUMARATE
     Indication: Product used for unknown indication
     Dosage: 1 DOSAGE FORM, QD (1 TABLET IN THE MORNING)
     Route: 065
  5. TRANYLCYPROMINE SULFATE [Suspect]
     Active Substance: TRANYLCYPROMINE SULFATE
     Indication: Depression
     Dosage: 1.5 DOSAGE FORM, BID (12 HR, 30 MG (1.5 TABLETS) MORNING AND 30 MG (1.5 TAB) IN THE AFTERNOON)
     Route: 065
  6. TEGRETOL [Suspect]
     Active Substance: CARBAMAZEPINE
     Indication: Product used for unknown indication
     Dosage: 500 MILLIGRAM, QD (1 TABLET IN THE MORNING AND 1.5 IN THE EVENING)
     Route: 065
  7. ASPIRIN [Suspect]
     Active Substance: ASPIRIN
     Indication: Product used for unknown indication
     Dosage: 1 DOSAGE FORM, QD (1 MIDI TABLET)
     Route: 065
  8. LIPTRUZET [Suspect]
     Active Substance: ATORVASTATIN CALCIUM\EZETIMIBE
     Indication: Product used for unknown indication
     Dosage: 1 DOSAGE FORM, QD (1X IN THE EVENING)
     Route: 065
  9. VALSARTAN [Suspect]
     Active Substance: VALSARTAN
     Indication: Product used for unknown indication
     Dosage: 80 MILLIGRAM, BID (12 HOURS, 1 TABLET MORNING AND EVENING)
     Route: 065

REACTIONS (9)
  - Transient ischaemic attack [Unknown]
  - Myocardial infarction [Recovered/Resolved with Sequelae]
  - Muscle spasms [Recovered/Resolved]
  - Asthenia [Recovering/Resolving]
  - Contusion [Not Recovered/Not Resolved]
  - Insomnia [Recovered/Resolved]
  - Blood pressure increased [Not Recovered/Not Resolved]
  - Diet noncompliance [Unknown]
  - Contraindicated product administered [Not Recovered/Not Resolved]

NARRATIVE: CASE EVENT DATE: 20030101
